FAERS Safety Report 12393454 (Version 1)
Quarter: 2016Q2

REPORT INFORMATION
  Report Type: Spontaneous
  Country: US (occurrence: US)
  Receive Date: 20160523
  Receipt Date: 20160523
  Transmission Date: 20160815
  Serious: Yes (Hospitalization)
  Sender: FDA-Public Use
  Company Number: US-GLAXOSMITHKLINE-US2016071886

PATIENT
  Age: 46 Year
  Sex: Female

DRUGS (12)
  1. CEVIMELINE. [Concomitant]
     Active Substance: CEVIMELINE
  2. PREDNISONE. [Concomitant]
     Active Substance: PREDNISONE
  3. LOTEMAX [Concomitant]
     Active Substance: LOTEPREDNOL ETABONATE
  4. SYNTHROID [Concomitant]
     Active Substance: LEVOTHYROXINE SODIUM
  5. LANOXIN [Concomitant]
     Active Substance: DIGOXIN
  6. SAVELLA [Concomitant]
     Active Substance: MILNACIPRAN HYDROCHLORIDE
  7. FOLIC ACID. [Concomitant]
     Active Substance: FOLIC ACID
  8. BENLYSTA [Suspect]
     Active Substance: BELIMUMAB
     Indication: SYSTEMIC LUPUS ERYTHEMATOSUS
     Dosage: UNK, CYC; USUALLY ONCE A MONTH
     Route: 042
  9. PLAQUENIL [Concomitant]
     Active Substance: HYDROXYCHLOROQUINE SULFATE
  10. BENLYSTA [Suspect]
     Active Substance: BELIMUMAB
     Indication: SJOGREN^S SYNDROME
  11. RESTASIS [Concomitant]
     Active Substance: CYCLOSPORINE
  12. TOPAMAX [Concomitant]
     Active Substance: TOPIRAMATE

REACTIONS (7)
  - Arthralgia [Unknown]
  - Herpes zoster [Unknown]
  - Product supply issue [Not Recovered/Not Resolved]
  - Drug dose omission [Not Recovered/Not Resolved]
  - Joint swelling [Unknown]
  - Infection [Unknown]
  - Drug effect decreased [Not Recovered/Not Resolved]

NARRATIVE: CASE EVENT DATE: 20160520
